FAERS Safety Report 5424429-8 (Version None)
Quarter: 2007Q3

REPORT INFORMATION
  Report Type: 
  Country: None (occurrence: None)
  Receive Date: 20070731
  Receipt Date: 20070402
  Transmission Date: 20080115
  Serious: No
  Sender: FDA-Public Use
  Company Number: US200704000674

PATIENT
  Age: 63 Year
  Sex: Female
  Weight: 72.6 kg

DRUGS (4)
  1. BYETTA [Suspect]
     Indication: TYPE 2 DIABETES MELLITUS
     Dosage: 5 UG, 2/D,10 UG,2/D SUBCUTANEOUS
     Route: 058
     Dates: start: 20060101, end: 20060101
  2. BYETTA [Suspect]
     Indication: TYPE 2 DIABETES MELLITUS
     Dosage: 5 UG, 2/D,10 UG,2/D SUBCUTANEOUS
     Route: 058
     Dates: start: 20060101
  3. METFORMIN [Concomitant]
  4. AVANDIA [Concomitant]

REACTIONS (5)
  - ANOREXIA [None]
  - BLOOD GLUCOSE ABNORMAL [None]
  - NAUSEA [None]
  - PRESYNCOPE [None]
  - WEIGHT DECREASED [None]
